FAERS Safety Report 17425262 (Version 1)
Quarter: 2020Q1

REPORT INFORMATION
  Report Type: Spontaneous
  Country: PT (occurrence: PT)
  Receive Date: 20200218
  Receipt Date: 20200218
  Transmission Date: 20200409
  Serious: Yes (Death, Other)
  Sender: FDA-Public Use
  Company Number: PT-ABBVIE-20K-130-3267100-00

PATIENT
  Age: 65 Year
  Sex: Male

DRUGS (2)
  1. VENCLYXTO [Suspect]
     Active Substance: VENETOCLAX
     Indication: MANTLE CELL LYMPHOMA
     Route: 048
  2. VENCLYXTO [Suspect]
     Active Substance: VENETOCLAX
     Dosage: DOSE DECREASED, TITRATION PHASE
     Route: 048

REACTIONS (4)
  - Diarrhoea [Unknown]
  - Toxicity to various agents [Unknown]
  - Off label use [Unknown]
  - Mantle cell lymphoma [Fatal]
